FAERS Safety Report 12242672 (Version 1)
Quarter: 2016Q2

REPORT INFORMATION
  Report Type: Spontaneous
  Country: ES (occurrence: ES)
  Receive Date: 20160406
  Receipt Date: 20160406
  Transmission Date: 20160815
  Serious: Yes (Other)
  Sender: FDA-Public Use
  Company Number: ES-WATSON-2016-07354

PATIENT
  Age: 52 Year
  Sex: Female

DRUGS (3)
  1. ENOXAPARIN [Concomitant]
     Active Substance: ENOXAPARIN
     Indication: SARCOIDOSIS
     Dosage: 40 MG, DAILY
     Route: 058
  2. OMEPRAZOLE. [Concomitant]
     Active Substance: OMEPRAZOLE
     Indication: SARCOIDOSIS
     Dosage: 20 MG, DAILY
     Route: 065
  3. KETOPROFEN (UNKNOWN) [Suspect]
     Active Substance: KETOPROFEN
     Indication: SARCOIDOSIS
     Dosage: 50 MG, DAILY
     Route: 065

REACTIONS (1)
  - Linear IgA disease [Unknown]
